FAERS Safety Report 25363505 (Version 1)
Quarter: 2025Q2

REPORT INFORMATION
  Report Type: Spontaneous
  Country: US (occurrence: US)
  Receive Date: 20250527
  Receipt Date: 20250527
  Transmission Date: 20250717
  Serious: No
  Sender: LUNDBECK
  Company Number: US-LUNDBECK-DKLU4014698

PATIENT
  Age: 32 Year
  Sex: Female
  Weight: 88.042 kg

DRUGS (1)
  1. NORTHERA [Suspect]
     Active Substance: DROXIDOPA
     Indication: Postural orthostatic tachycardia syndrome
     Dosage: 300 MILLIGRAM
     Route: 048
     Dates: start: 202402

REACTIONS (2)
  - Hypoaesthesia [Not Recovered/Not Resolved]
  - Muscle spasms [Not Recovered/Not Resolved]
